FAERS Safety Report 4830996-5 (Version None)
Quarter: 2005Q4

REPORT INFORMATION
  Report Type: 
  Country: None (occurrence: None)
  Receive Date: 20051115
  Receipt Date: 20051115
  Transmission Date: 20060501
  Serious: Yes (Hospitalization)
  Sender: FDA-Public Use
  Company Number: None

PATIENT
  Age: 59 Year
  Sex: Male
  Weight: 72.5755 kg

DRUGS (6)
  1. LEVETIRACETAM [Suspect]
     Indication: PARKINSON'S DISEASE
     Dosage: 125 MG , PO ,BID
     Route: 048
     Dates: start: 20050916, end: 20051007
  2. SINEMET [Concomitant]
  3. COMTAN [Concomitant]
  4. APKOIN [Concomitant]
  5. AMANTADINE HCL [Concomitant]
  6. MIRAPEX [Concomitant]

REACTIONS (1)
  - HALLUCINATION, VISUAL [None]
